FAERS Safety Report 9440992 (Version 2)
Quarter: 2013Q3

REPORT INFORMATION
  Report Type: Spontaneous
  Country: US (occurrence: US)
  Receive Date: 20130805
  Receipt Date: 20130807
  Transmission Date: 20140515
  Serious: Yes (Hospitalization)
  Sender: FDA-Public Use
  Company Number: US-ABBOTT-13P-163-1126626-00

PATIENT
  Age: 35 Year
  Sex: Male
  Weight: 81.72 kg

DRUGS (8)
  1. NORVIR [Suspect]
     Indication: HIV TEST POSITIVE
     Route: 048
     Dates: start: 20130617
  2. FLAGYL [Suspect]
     Indication: FUNGAL INFECTION
     Dates: start: 201307
  3. TRUVADA [Concomitant]
     Indication: HIV TEST POSITIVE
     Dates: start: 20130610
  4. PREZISTA [Concomitant]
     Indication: HIV TEST POSITIVE
     Dates: start: 20130610
  5. ZIAGEN [Concomitant]
     Indication: HIV TEST POSITIVE
     Dates: start: 20130610
  6. ACYCLOVIR [Concomitant]
     Indication: RASH
     Dates: start: 20130610
  7. ATARAX [Concomitant]
     Indication: RASH
     Dates: start: 20130610
  8. PREDNISONE [Concomitant]
     Indication: RASH
     Dates: start: 20130610

REACTIONS (9)
  - Pyrexia [Recovered/Resolved]
  - Incorrect product storage [Not Recovered/Not Resolved]
  - Poor quality drug administered [Not Recovered/Not Resolved]
  - Paraesthesia [Not Recovered/Not Resolved]
  - Fungal infection [Recovering/Resolving]
  - Irritability [Not Recovered/Not Resolved]
  - Oral candidiasis [Recovering/Resolving]
  - Headache [Not Recovered/Not Resolved]
  - Migraine [Not Recovered/Not Resolved]
